FAERS Safety Report 19327988 (Version 2)
Quarter: 2021Q2

REPORT INFORMATION
  Report Type: Spontaneous
  Country: US (occurrence: US)
  Receive Date: 20210528
  Receipt Date: 20210619
  Transmission Date: 20210717
  Serious: No
  Sender: FDA-Public Use
  Company Number: US-UNITED THERAPEUTICS-UNT-2021-009647

PATIENT
  Age: 36 Year
  Sex: Female

DRUGS (3)
  1. MACITENTAN [Concomitant]
     Active Substance: MACITENTAN
     Indication: PULMONARY ARTERIAL HYPERTENSION
     Dosage: 10 MG, QD (EVERY 1 DAY)
     Route: 048
     Dates: start: 20190820
  2. REMODULIN [Suspect]
     Active Substance: TREPROSTINIL
     Indication: PULMONARY ARTERIAL HYPERTENSION
     Dosage: UNK, CONTINUING
     Route: 041
     Dates: start: 20210504
  3. REMODULIN [Suspect]
     Active Substance: TREPROSTINIL
     Dosage: 0.022 ?G/KG, CONTINUING
     Route: 041

REACTIONS (4)
  - Fatigue [Recovering/Resolving]
  - Arthralgia [Recovering/Resolving]
  - Migraine [Recovered/Resolved]
  - Pain in jaw [Recovering/Resolving]

NARRATIVE: CASE EVENT DATE: 202105
